FAERS Safety Report 11927255 (Version 1)
Quarter: 2016Q1

REPORT INFORMATION
  Report Type: Spontaneous
  Country: CA (occurrence: CA)
  Receive Date: 20160119
  Receipt Date: 20160119
  Transmission Date: 20160526
  Serious: Yes (Hospitalization, Other)
  Sender: FDA-Public Use
  Company Number: CA-TEVA-626392ACC

PATIENT
  Age: 66 Year
  Sex: Male
  Weight: 86.26 kg

DRUGS (12)
  1. TETRACYCLINE [Concomitant]
     Active Substance: TETRACYCLINE
  2. ACETAMINOPHEN. [Concomitant]
     Active Substance: ACETAMINOPHEN
  3. VITAMIN D [Concomitant]
     Active Substance: CHOLECALCIFEROL
  4. LISINOPRIL / HYDROCHLOROTHIAZIDE [Concomitant]
  5. OLESTYR [Concomitant]
  6. TEVA-AMIODARONE [Suspect]
     Active Substance: AMIODARONE
     Indication: OFF LABEL USE
  7. JANUMET [Concomitant]
     Active Substance: METFORMIN HYDROCHLORIDE\SITAGLIPTIN PHOSPHATE
  8. ROSUVASTATIN [Concomitant]
     Active Substance: ROSUVASTATIN
  9. AMLODIPINE [Concomitant]
     Active Substance: AMLODIPINE BESYLATE
  10. ASA [Concomitant]
     Active Substance: ASPIRIN
  11. ALPRAZOLAM. [Concomitant]
     Active Substance: ALPRAZOLAM
  12. TEVA-AMIODARONE [Suspect]
     Active Substance: AMIODARONE
     Indication: HEART RATE
     Dosage: 400 MILLIGRAM DAILY;
     Route: 048

REACTIONS (2)
  - Oesophageal varices haemorrhage [Recovering/Resolving]
  - Haematemesis [Recovering/Resolving]
